FAERS Safety Report 5318817-8 (Version None)
Quarter: 2007Q2

REPORT INFORMATION
  Report Type: 
  Country: None (occurrence: None)
  Receive Date: 20070504
  Receipt Date: 20070504
  Transmission Date: 20071010
  Serious: Yes (Other)
  Sender: FDA-Public Use
  Company Number: None

PATIENT
  Sex: Female
  Weight: 63.5036 kg

DRUGS (3)
  1. FORTICAL [Suspect]
     Indication: OSTEOPOROSIS
     Dosage: 1 SPRAY, ALTERNATING NOSTRIL   ONCE DAILY  NASAL
     Route: 045
     Dates: start: 20070301, end: 20070307
  2. SINGULAIR [Concomitant]
  3. TRAVATAN [Concomitant]

REACTIONS (2)
  - NASAL DISCOMFORT [None]
  - PHARMACEUTICAL PRODUCT COMPLAINT [None]
